FAERS Safety Report 6713709-1 (Version None)
Quarter: 2010Q2

REPORT INFORMATION
  Report Type: 
  Country: None (occurrence: None)
  Receive Date: 20100506
  Receipt Date: 20100427
  Transmission Date: 20101027
  Serious: Yes (Other)
  Sender: FDA-Public Use
  Company Number: JP-PFIZER INC-2010055334

PATIENT

DRUGS (1)
  1. SALAZOPYRIN [Suspect]

REACTIONS (2)
  - DYSPNOEA [None]
  - SUFFOCATION FEELING [None]
